FAERS Safety Report 17137358 (Version 1)
Quarter: 2019Q4

REPORT INFORMATION
  Report Type: Spontaneous
  Country: US (occurrence: US)
  Receive Date: 20191210
  Receipt Date: 20191210
  Transmission Date: 20200122
  Serious: No
  Sender: FDA-Public Use
  Company Number: US-VIFOR (INTERNATIONAL) INC.-VIT-2019-14123

PATIENT
  Sex: Male

DRUGS (19)
  1. RANITIDINE. [Concomitant]
     Active Substance: RANITIDINE
  2. TAMSULOSIN [Concomitant]
     Active Substance: TAMSULOSIN
  3. GLIPIZIDE. [Concomitant]
     Active Substance: GLIPIZIDE
  4. ASPIRIN. [Concomitant]
     Active Substance: ASPIRIN
  5. VELTASSA [Suspect]
     Active Substance: PATIROMER
     Indication: HYPERKALAEMIA
     Route: 048
     Dates: start: 20170606
  6. MAGNESIUM OXIDE. [Concomitant]
     Active Substance: MAGNESIUM OXIDE
  7. CYCLOBENZAPRINE. [Concomitant]
     Active Substance: CYCLOBENZAPRINE
  8. ONDANSETRON [Concomitant]
     Active Substance: ONDANSETRON
  9. MEGESTROL AC [Concomitant]
  10. TRAVATAN Z [Concomitant]
     Active Substance: TRAVOPROST
  11. FUROSEMIDE. [Concomitant]
     Active Substance: FUROSEMIDE
  12. LABETALOL [Concomitant]
     Active Substance: LABETALOL\LABETALOL HYDROCHLORIDE
  13. BUPROPION. [Concomitant]
     Active Substance: BUPROPION
  14. MEGESTROL AC [Concomitant]
  15. ATORVASTATIN [Concomitant]
     Active Substance: ATORVASTATIN
  16. RABEPRAZOLE [Concomitant]
     Active Substance: RABEPRAZOLE
  17. PROBIOTIC [Concomitant]
     Active Substance: PROBIOTICS NOS
  18. COMBIGAN [Concomitant]
     Active Substance: BRIMONIDINE TARTRATE\TIMOLOL MALEATE
     Dosage: 0.2/0.5 PERCENT
  19. VITAMIN B COMPLEX [Concomitant]
     Active Substance: CYANOCOBALAMIN\DEXPANTHENOL\NIACINAMIDE\PYRIDOXINE HYDROCHLORIDE\RIBOFLAVIN 5^-PHOSPHATE SODIUM\THIAMINE HYDROCHLORIDE\VITAMIN B COMPLEX

REACTIONS (2)
  - Pain [Unknown]
  - Nerve compression [Unknown]
